FAERS Safety Report 9374838 (Version 1)
Quarter: 2013Q2

REPORT INFORMATION
  Report Type: Spontaneous
  Country: US (occurrence: US)
  Receive Date: 20130628
  Receipt Date: 20130628
  Transmission Date: 20140414
  Serious: Yes (Other)
  Sender: FDA-Public Use
  Company Number: US-GLAXOSMITHKLINE-A0989622A

PATIENT
  Age: 73 Year
  Sex: Female

DRUGS (2)
  1. ZYBAN [Suspect]
     Indication: SMOKING CESSATION THERAPY
     Route: 048
     Dates: start: 20120629, end: 20120727
  2. NICOTINE [Suspect]
     Indication: SMOKING CESSATION THERAPY
     Dates: start: 20120723, end: 20120724

REACTIONS (1)
  - Deafness unilateral [Not Recovered/Not Resolved]
